FAERS Safety Report 7569205-5 (Version None)
Quarter: 2011Q2

REPORT INFORMATION
  Report Type: 
  Country: None (occurrence: None)
  Receive Date: 20110623
  Receipt Date: 20110610
  Transmission Date: 20111010
  Serious: Yes (Hospitalization)
  Sender: FDA-Public Use
  Company Number: PHHY2011NL19993

PATIENT
  Sex: Male

DRUGS (16)
  1. ZOMETA [Suspect]
     Dosage: UNK
     Dates: start: 20110518
  2. LACTULOSE [Concomitant]
  3. SERETIDE [Concomitant]
  4. ZOMETA [Suspect]
     Dosage: UNK
     Dates: start: 20110411
  5. BETAHISTINE [Concomitant]
  6. ZOMETA [Suspect]
     Dosage: UNK
     Dates: start: 20110426
  7. ALBUTEROL [Concomitant]
  8. OXYCODONE HCL [Concomitant]
  9. CHEMOTHERAPEUTICS NOS [Concomitant]
     Dosage: UNK
     Dates: start: 20110411
  10. ZOMETA [Suspect]
     Indication: BRONCHIAL CARCINOMA
     Dosage: 4 MG, PER 5 ML EVERY 21 DAYS
     Route: 042
     Dates: start: 20110125
  11. ZOMETA [Suspect]
     Dosage: UNK
     Dates: start: 20110610
  12. CALCICHEW [Concomitant]
  13. SPIRIVA [Concomitant]
  14. ZOMETA [Suspect]
     Dosage: 4 MG, PER 5 ML EVERY 21 DAYS
     Route: 042
     Dates: start: 20110215
  15. OXYCONTIN [Concomitant]
  16. RAMIPRIL [Concomitant]

REACTIONS (6)
  - CHEST DISCOMFORT [None]
  - DEHYDRATION [None]
  - PYREXIA [None]
  - WHITE BLOOD CELL COUNT DECREASED [None]
  - MALAISE [None]
  - DYSPNOEA [None]
